FAERS Safety Report 4309612-7 (Version None)
Quarter: 2004Q1

REPORT INFORMATION
  Report Type: 
  Country: None (occurrence: None)
  Receive Date: 20040301
  Receipt Date: 20040219
  Transmission Date: 20041129
  Serious: Yes (Death, Life-Threatening, Hospitalization)
  Sender: FDA-Public Use
  Company Number: USA-2002-006651

PATIENT
  Age: 68 Year
  Sex: Male
  Weight: 75.3 kg

DRUGS (12)
  1. GM-CSF 14 (GM-CSF) (SARGRAMOSTIM) INJECTION [Suspect]
     Indication: COLORECTAL CANCER METASTATIC
     Dosage: 500 UG, 1X/DAY, SUBCUTANEOUS
     Route: 058
     Dates: start: 20021015, end: 20021017
  2. FLUOROURACIL [Suspect]
     Indication: COLORECTAL CANCER METASTATIC
     Dosage: 500 MG/M2 1X/WEEK, INTRAVENOUS
     Route: 042
     Dates: start: 20021014, end: 20021014
  3. LEUCOVORIN CALCIUM [Suspect]
     Indication: COLORECTAL CANCER METASTATIC
     Dosage: 20 MG/M2, 1X/WEEK, INTRAVENOUS
     Route: 042
     Dates: start: 20021014, end: 20021014
  4. CAMPTOSAR [Suspect]
     Indication: COLORECTAL CANCER METASTATIC
     Dosage: 125 MG/M2, 1X/WEEK, INTRAVENOUS
     Route: 042
     Dates: start: 20021014, end: 20021014
  5. PREVACID [Concomitant]
  6. DARVOCET-N 100 [Concomitant]
  7. OXYCONTIN [Concomitant]
  8. CARAFATE [Concomitant]
  9. ALLEGRA [Concomitant]
  10. OXYCONTIN [Concomitant]
  11. COUMADIN [Concomitant]
  12. CELEXA [Concomitant]

REACTIONS (8)
  - ACUTE RESPIRATORY DISTRESS SYNDROME [None]
  - ELECTROCARDIOGRAM POOR R-WAVE PROGRESSION [None]
  - ELECTROCARDIOGRAM T WAVE INVERSION [None]
  - OXYGEN SATURATION DECREASED [None]
  - PNEUMONIA [None]
  - RESPIRATORY FAILURE [None]
  - SINUS TACHYCARDIA [None]
  - SOMNOLENCE [None]
